FAERS Safety Report 15943745 (Version 1)
Quarter: 2019Q1

REPORT INFORMATION
  Report Type: Spontaneous
  Country: US (occurrence: US)
  Receive Date: 20190118
  Receipt Date: 20190118
  Transmission Date: 20190417
  Serious: No
  Sender: FDA-Public Use
  Company Number: None

PATIENT
  Age: 67 Year
  Sex: Female

DRUGS (1)
  1. IBRANCE [Suspect]
     Active Substance: PALBOCICLIB
     Route: 048
     Dates: start: 201812

REACTIONS (5)
  - Headache [None]
  - Dizziness [None]
  - Epistaxis [None]
  - Rash macular [None]
  - Stomatitis [None]

NARRATIVE: CASE EVENT DATE: 20190101
